FAERS Safety Report 8489815-0 (Version None)
Quarter: 2012Q3

REPORT INFORMATION
  Report Type: 
  Country: None (occurrence: None)
  Receive Date: 20120705
  Receipt Date: 20120605
  Transmission Date: 20120928
  Serious: No
  Sender: FDA-Public Use
  Company Number: US-BAUSCH-2012BL003763

PATIENT
  Age: 72 Year
  Sex: Female

DRUGS (5)
  1. OMEPRAZOLE [Concomitant]
     Indication: GASTROOESOPHAGEAL REFLUX DISEASE
     Route: 048
     Dates: start: 20120101
  2. REFRESH LIQUIGEL [Concomitant]
     Indication: DRY EYE
     Route: 047
     Dates: start: 20100101
  3. RESTASIS [Concomitant]
     Indication: DRY EYE
     Route: 047
     Dates: start: 20110101
  4. ADVANCED EYE RELIEF/DRY EYE/REJUVENATION LUBRICANT EYE DROPS [Concomitant]
     Indication: DRY EYE
     Route: 047
     Dates: start: 20110901
  5. LATANOPROST [Suspect]
     Indication: OPEN ANGLE GLAUCOMA
     Route: 047
     Dates: start: 20100801

REACTIONS (1)
  - EYE IRRITATION [None]
